FAERS Safety Report 5204991-0 (Version None)
Quarter: 2007Q1

REPORT INFORMATION
  Report Type: 
  Country: None (occurrence: None)
  Receive Date: 20070110
  Receipt Date: 20061024
  Transmission Date: 20070707
  Serious: Yes (Disabling)
  Sender: FDA-Public Use
  Company Number: US-BRISTOL-MYERS SQUIBB COMPANY-13521844

PATIENT
  Age: 57 Year
  Sex: Male

DRUGS (4)
  1. ABILIFY [Suspect]
     Indication: BIPOLAR DISORDER
     Dosage: DOSE VALUE:  2 TO 8 MG
     Route: 048
  2. DEPAKOTE [Concomitant]
  3. PROVIGIL [Concomitant]
  4. FLUOXETINE [Concomitant]

REACTIONS (1)
  - TARDIVE DYSKINESIA [None]
